FAERS Safety Report 18402843 (Version 2)
Quarter: 2020Q4

REPORT INFORMATION
  Report Type: Report from Study
  Country: AU (occurrence: AU)
  Receive Date: 20201019
  Receipt Date: 20201026
  Transmission Date: 20210114
  Serious: Yes (Death, Hospitalization)
  Sender: FDA-Public Use
  Company Number: AU-EXELIXIS-XL18420032740

PATIENT

DRUGS (13)
  1. GAVISCON [Concomitant]
     Active Substance: ALUMINUM HYDROXIDE\MAGNESIUM CARBONATE
     Indication: GASTROOESOPHAGEAL REFLUX DISEASE
     Dosage: UNK
  2. MACROVIT [Concomitant]
     Indication: CONSTIPATION
     Dosage: UNK
  3. XL184 [Suspect]
     Active Substance: CABOZANTINIB
     Indication: PRODUCT USED FOR UNKNOWN INDICATION
     Dosage: 60 MG
     Dates: start: 20200312
  4. XL184 [Suspect]
     Active Substance: CABOZANTINIB
     Dosage: 40 MG
     Dates: start: 20200730
  5. MAGNESIUM [Concomitant]
     Active Substance: MAGNESIUM
     Indication: SUPPLEMENTATION THERAPY
     Dosage: UNK
  6. PANADOL [Concomitant]
     Active Substance: ACETAMINOPHEN
     Indication: PAIN
     Dosage: UNK
  7. IRBESARTAN. [Concomitant]
     Active Substance: IRBESARTAN
     Indication: HYPERTENSION
     Dosage: UNK
  8. SIMVAR [Concomitant]
     Indication: DYSLIPIDAEMIA
     Dosage: UNK
  9. INSOLAR [Concomitant]
     Indication: SUPPLEMENTATION THERAPY
     Dosage: UNK
  10. MIRTAZAPINE. [Concomitant]
     Active Substance: MIRTAZAPINE
     Indication: DEPRESSION
     Dosage: UNK
  11. NEXAZOLE [Concomitant]
     Indication: GASTROOESOPHAGEAL REFLUX DISEASE
     Dosage: UNK
  12. METOCLOPRAMIDE. [Concomitant]
     Active Substance: METOCLOPRAMIDE
     Indication: NAUSEA
     Dosage: UNK
  13. ONDANSETRON [Concomitant]
     Active Substance: ONDANSETRON
     Indication: NAUSEA
     Dosage: UNK

REACTIONS (2)
  - Sepsis [Fatal]
  - Decreased appetite [Unknown]

NARRATIVE: CASE EVENT DATE: 20200905
